FAERS Safety Report 7538964-X (Version None)
Quarter: 2011Q2

REPORT INFORMATION
  Report Type: 
  Country: None (occurrence: None)
  Receive Date: 20110610
  Receipt Date: 20110128
  Transmission Date: 20111010
  Serious: Yes (Hospitalization)
  Sender: FDA-Public Use
  Company Number: US-BAYER-2010-006841

PATIENT
  Age: 18 Year
  Sex: Female
  Weight: 88.435 kg

DRUGS (8)
  1. IBUPROFEN [Concomitant]
  2. DROSPIRENONE AND ETHINYL ESTRADIOL [Suspect]
     Indication: PREMENSTRUAL SYNDROME
  3. ETHINYLESTRAD W/FERROUS FUM/NORETHISTER ACET [Concomitant]
  4. YASMIN [Suspect]
     Indication: HORMONE LEVEL ABNORMAL
     Dosage: UNK
     Dates: start: 20061130, end: 20070601
  5. DROSPIRENONE AND ETHINYL ESTRADIOL [Suspect]
     Indication: HORMONE LEVEL ABNORMAL
     Dosage: UNK
     Dates: start: 20080720, end: 20081001
  6. NAPROXEN [Concomitant]
  7. PHENTERMINE [Concomitant]
     Dosage: UNK
     Dates: start: 20080301
  8. YASMIN [Suspect]
     Indication: PREMENSTRUAL SYNDROME
     Dosage: UNK
     Dates: start: 20071228, end: 20080620

REACTIONS (4)
  - ABDOMINAL PAIN [None]
  - CHOLELITHIASIS [None]
  - CHOLECYSTITIS CHRONIC [None]
  - NAUSEA [None]
